FAERS Safety Report 5452678-1 (Version None)
Quarter: 2007Q3

REPORT INFORMATION
  Report Type: 
  Country: None (occurrence: None)
  Receive Date: 20070914
  Receipt Date: 20070903
  Transmission Date: 20080115
  Serious: Yes (Other)
  Sender: FDA-Public Use
  Company Number: TN-JNJFOC-20070900101

PATIENT
  Age: 37 Year
  Sex: Male

DRUGS (1)
  1. GRISEOFULVIN [Suspect]
     Indication: DRUG USE FOR UNKNOWN INDICATION
     Route: 065

REACTIONS (2)
  - SELF-MEDICATION [None]
  - STEVENS-JOHNSON SYNDROME [None]
